FAERS Safety Report 15100489 (Version 1)
Quarter: 2018Q3

REPORT INFORMATION
  Report Type: Spontaneous
  Country: US (occurrence: US)
  Receive Date: 20180703
  Receipt Date: 20180703
  Transmission Date: 20181010
  Serious: Yes (Other)
  Sender: FDA-Public Use
  Company Number: US-ROCHE-2146391

PATIENT
  Sex: Female

DRUGS (1)
  1. RITUXAN [Suspect]
     Active Substance: RITUXIMAB
     Indication: RHEUMATOID ARTHRITIS
     Route: 042

REACTIONS (7)
  - Urticaria [Unknown]
  - Abdominal discomfort [Unknown]
  - Pyrexia [Unknown]
  - Vomiting [Unknown]
  - Renal disorder [Unknown]
  - Blood pressure decreased [Unknown]
  - Migraine [Unknown]
